FAERS Safety Report 7227083-8 (Version None)
Quarter: 2011Q1

REPORT INFORMATION
  Report Type: 
  Country: None (occurrence: None)
  Receive Date: 20110114
  Receipt Date: 20110111
  Transmission Date: 20110831
  Serious: Yes (Death)
  Sender: FDA-Public Use
  Company Number: RU-ROCHE-744137

PATIENT
  Sex: Male
  Weight: 91.5 kg

DRUGS (2)
  1. INTERFERON ALFA-2A [Suspect]
     Indication: METASTATIC RENAL CELL CARCINOMA
     Dosage: DOSE: 3 MME, LAST DOSE PRIOR TO SAE 12 NOV 2010.
     Route: 065
     Dates: start: 20090814
  2. BEVACIZUMAB [Suspect]
     Indication: METASTATIC RENAL CELL CARCINOMA
     Dosage: LAST DOSE PRIOR TO SAE 28 OCT 2010.
     Route: 042
     Dates: start: 20090814

REACTIONS (1)
  - GASTROINTESTINAL DISORDER [None]
